FAERS Safety Report 7563900-X (Version None)
Quarter: 2011Q2

REPORT INFORMATION
  Report Type: 
  Country: None (occurrence: None)
  Receive Date: 20110622
  Receipt Date: 20110208
  Transmission Date: 20111010
  Serious: No
  Sender: FDA-Public Use
  Company Number: US-BRISTOL-MYERS SQUIBB COMPANY-15545452

PATIENT

DRUGS (2)
  1. ETOPOSIDE [Suspect]
  2. ETOPOPHOS PRESERVATIVE FREE [Suspect]

REACTIONS (1)
  - MEDICATION ERROR [None]
